FAERS Safety Report 17519058 (Version 3)
Quarter: 2022Q4

REPORT INFORMATION
  Report Type: Spontaneous
  Country: US (occurrence: None)
  Receive Date: 20200310
  Receipt Date: 20221115
  Transmission Date: 20230112
  Serious: Yes (Other)
  Sender: FDA-Public Use
  Company Number: 2020SE31960

PATIENT
  Sex: Female
  Weight: 72.1 kg

DRUGS (52)
  1. OMEPRAZOLE [Suspect]
     Active Substance: OMEPRAZOLE
     Indication: Gastric ulcer
     Route: 065
     Dates: start: 2009, end: 2014
  2. OMEPRAZOLE [Suspect]
     Active Substance: OMEPRAZOLE
     Indication: Pain
     Route: 065
     Dates: start: 2009, end: 2014
  3. PREVACID [Suspect]
     Active Substance: LANSOPRAZOLE
     Indication: Gastric ulcer
     Route: 065
     Dates: start: 2005, end: 2009
  4. PREVACID [Suspect]
     Active Substance: LANSOPRAZOLE
     Indication: Pain
     Route: 065
     Dates: start: 2005, end: 2009
  5. PREVACID [Suspect]
     Active Substance: LANSOPRAZOLE
     Indication: Gastric ulcer
     Dosage: GENERIC
     Route: 065
     Dates: start: 2015, end: 2016
  6. PREVACID [Suspect]
     Active Substance: LANSOPRAZOLE
     Indication: Pain
     Dosage: GENERIC
     Route: 065
     Dates: start: 2015, end: 2016
  7. PREVACID [Suspect]
     Active Substance: LANSOPRAZOLE
     Indication: Gastric ulcer
     Route: 065
     Dates: start: 20051028
  8. PREVACID [Suspect]
     Active Substance: LANSOPRAZOLE
     Indication: Pain
     Route: 065
     Dates: start: 20051028
  9. PANTOPRAZOLE [Suspect]
     Active Substance: PANTOPRAZOLE
     Indication: Gastric ulcer
     Dosage: TWO TIMES A DAY
     Route: 065
     Dates: start: 201412
  10. PANTOPRAZOLE [Suspect]
     Active Substance: PANTOPRAZOLE
     Indication: Pain
     Dosage: TWO TIMES A DAY
     Route: 065
     Dates: start: 201412
  11. SULFASALAZINE [Concomitant]
     Active Substance: SULFASALAZINE
     Indication: Rheumatoid arthritis
  12. CIMETIDINE [Concomitant]
     Active Substance: CIMETIDINE
     Indication: Abdominal discomfort
  13. TRAMADOL [Concomitant]
     Active Substance: TRAMADOL
     Indication: Pain
     Dates: start: 2004
  14. DIAZEPAM [Concomitant]
     Active Substance: DIAZEPAM
     Indication: Rheumatoid arthritis
     Dates: start: 1985
  15. NITROFURANTOIN [Concomitant]
     Active Substance: NITROFURANTOIN
     Indication: Chest pain
     Dates: start: 2017
  16. URISPAS [Concomitant]
     Active Substance: FLAVOXATE HYDROCHLORIDE
     Indication: Neoplasm malignant
  17. CELEBREX [Concomitant]
     Active Substance: CELECOXIB
     Indication: Rheumatoid arthritis
  18. OXYTROL [Concomitant]
     Active Substance: OXYBUTYNIN
     Indication: Neoplasm malignant
     Dates: start: 20050609
  19. PREDNISONE [Concomitant]
     Active Substance: PREDNISONE
     Indication: Rheumatoid arthritis
     Route: 065
     Dates: start: 20080322
  20. PREDNISONE [Concomitant]
     Active Substance: PREDNISONE
     Indication: Rheumatoid arthritis
     Dates: start: 2010
  21. METHOTREXATE [Concomitant]
     Active Substance: METHOTREXATE
     Dates: start: 20071218
  22. PHENAZOPYRIDINE [Concomitant]
     Active Substance: PHENAZOPYRIDINE
  23. LEFLUNOMIDE [Concomitant]
     Active Substance: LEFLUNOMIDE
  24. FOLIC ACID [Concomitant]
     Active Substance: FOLIC ACID
     Dates: start: 2006
  25. CIPROFLOXACIN [Concomitant]
     Active Substance: CIPROFLOXACIN
     Dates: start: 20090406
  26. DOXYCYCLINE [Concomitant]
     Active Substance: DOXYCYCLINE
  27. SUCRALFATE [Concomitant]
     Active Substance: SUCRALFATE
  28. POTASSIUM CHLORIDE [Concomitant]
     Active Substance: POTASSIUM CHLORIDE
  29. ACTEMRA [Concomitant]
     Active Substance: TOCILIZUMAB
     Dates: start: 2012
  30. VITAMIN D3 [Concomitant]
     Active Substance: CHOLECALCIFEROL
     Indication: Vitamin D decreased
     Dates: start: 2015
  31. BIOTIN [Concomitant]
     Active Substance: BIOTIN
     Indication: Alopecia
     Dates: start: 2010
  32. CALCIUM CARBONATE [Concomitant]
     Active Substance: CALCIUM CARBONATE
     Indication: Blood calcium decreased
     Dates: start: 1988
  33. CETIRIZINE HYDROCHLORIDE [Concomitant]
     Active Substance: CETIRIZINE HYDROCHLORIDE
     Indication: Multiple allergies
     Dates: start: 2015
  34. MAALOX ANTACID [Concomitant]
     Active Substance: ALUMINUM HYDROXIDE\DIMETHICONE\MAGNESIUM HYDROXIDE
  35. COUMADIN [Concomitant]
     Active Substance: WARFARIN SODIUM
  36. LASIX [Concomitant]
     Active Substance: FUROSEMIDE
  37. METOPROLOL TARTRATE [Concomitant]
     Active Substance: METOPROLOL TARTRATE
  38. ISOSORBIDE DINITRATE [Concomitant]
     Active Substance: ISOSORBIDE DINITRATE
     Dosage: ORAL TABLET
  39. PREMARIN [Concomitant]
     Active Substance: ESTROGENS, CONJUGATED
  40. CLOTRIMAZOLE AND BETAMETHASONE DIPROPIONATE [Concomitant]
     Active Substance: BETAMETHASONE\BETAMETHASONE DIPROPIONATE\CLOTRIMAZOLE
  41. LISINOPRIL [Concomitant]
     Active Substance: LISINOPRIL
  42. NITROGLYCERIN [Concomitant]
     Active Substance: NITROGLYCERIN
  43. CLOPIDOGREL [Concomitant]
     Active Substance: CLOPIDOGREL BISULFATE
  44. FAMOTIDINE [Concomitant]
     Active Substance: FAMOTIDINE
  45. VOLTAREN [Concomitant]
     Active Substance: DICLOFENAC SODIUM
  46. ASPIRIN [Concomitant]
     Active Substance: ASPIRIN
  47. ZITHROMAX [Concomitant]
     Active Substance: AZITHROMYCIN DIHYDRATE
  48. CEFUROXIME AXETIL [Concomitant]
     Active Substance: CEFUROXIME AXETIL
     Route: 065
     Dates: start: 20181114
  49. CEPHALEXIN [Concomitant]
     Active Substance: CEPHALEXIN
     Route: 065
     Dates: start: 20190606
  50. ISOPTO ATROPINE [Concomitant]
     Active Substance: ATROPINE SULFATE
     Route: 065
     Dates: start: 20191201
  51. QUETIAPINE FUMARATE [Concomitant]
     Active Substance: QUETIAPINE FUMARATE
     Route: 065
     Dates: start: 20191201
  52. ROSUVASTATIN [Concomitant]
     Active Substance: ROSUVASTATIN
     Route: 065
     Dates: start: 20191201

REACTIONS (6)
  - Chronic kidney disease [Not Recovered/Not Resolved]
  - Renal failure [Unknown]
  - Acute kidney injury [Unknown]
  - End stage renal disease [Unknown]
  - Hyperparathyroidism secondary [Unknown]
  - Chronic kidney disease-mineral and bone disorder [Unknown]
